FAERS Safety Report 15456407 (Version 1)
Quarter: 2018Q4

REPORT INFORMATION
  Report Type: Spontaneous
  Country: IT (occurrence: IT)
  Receive Date: 20181002
  Receipt Date: 20181002
  Transmission Date: 20190204
  Serious: Yes (Hospitalization)
  Sender: FDA-Public Use
  Company Number: IT-PFIZER INC-2018392083

PATIENT
  Age: 49 Year
  Sex: Male

DRUGS (2)
  1. ZOLOFT [Suspect]
     Active Substance: SERTRALINE HYDROCHLORIDE
     Indication: MENTAL DISORDER
     Dosage: 50 MG, 1X/DAY
     Route: 048
     Dates: start: 20180813, end: 20180905
  2. CLOZAPINE. [Interacting]
     Active Substance: CLOZAPINE
     Indication: MENTAL DISORDER
     Dosage: 125 MG, 1X/DAY
     Route: 048

REACTIONS (3)
  - Tremor [Recovering/Resolving]
  - Drug interaction [Recovering/Resolving]
  - Myoclonus [Recovering/Resolving]

NARRATIVE: CASE EVENT DATE: 20180905
